FAERS Safety Report 13614123 (Version 2)
Quarter: 2018Q2

REPORT INFORMATION
  Report Type: Spontaneous
  Country: US (occurrence: US)
  Receive Date: 20170606
  Receipt Date: 20180409
  Transmission Date: 20180711
  Serious: Yes (Hospitalization, Other)
  Sender: FDA-Public Use
  Company Number: US-ELI_LILLY_AND_COMPANY-US201705010550

PATIENT
  Age: 57 Year
  Sex: Male
  Weight: 136.5 kg

DRUGS (5)
  1. TALTZ [Suspect]
     Active Substance: IXEKIZUMAB
     Dosage: 80 MG, MONTHLY (1/M)
     Route: 058
     Dates: start: 20171004
  2. OTEZLA [Concomitant]
     Active Substance: APREMILAST
     Indication: PSORIASIS
     Dosage: 30 MG, BID
     Route: 065
     Dates: start: 201606
  3. METFORMIN [Concomitant]
     Active Substance: METFORMIN HYDROCHLORIDE
     Dosage: UNK, UNKNOWN
     Route: 065
  4. TALTZ [Suspect]
     Active Substance: IXEKIZUMAB
     Indication: PSORIASIS
     Dosage: 80 MG, MONTHLY (1/M)
     Route: 058
     Dates: start: 201606, end: 20170404
  5. BYSTOLIC [Concomitant]
     Active Substance: NEBIVOLOL HYDROCHLORIDE
     Dosage: UNK, UNKNOWN
     Route: 065

REACTIONS (1)
  - Diffuse large B-cell lymphoma [Recovered/Resolved]

NARRATIVE: CASE EVENT DATE: 20170417
